FAERS Safety Report 9217519 (Version 4)
Quarter: 2013Q2

REPORT INFORMATION
  Report Type: Spontaneous
  Country: JP (occurrence: JP)
  Receive Date: 20130408
  Receipt Date: 20130527
  Transmission Date: 20140414
  Serious: Yes (Other)
  Sender: FDA-Public Use
  Company Number: JP-PFIZER INC-2013108679

PATIENT
  Age: 77 Year
  Sex: Female

DRUGS (30)
  1. LYRICA [Suspect]
     Indication: HYPOAESTHESIA
     Dosage: 25 MG, 2X/DAY
     Route: 048
     Dates: start: 20120613, end: 20120704
  2. LYRICA [Suspect]
     Indication: POST HERPETIC NEURALGIA
     Dosage: 75MG/DAY
     Route: 048
     Dates: start: 20120705, end: 2012
  3. LYRICA [Suspect]
     Dosage: 100 MG, 1X/DAY
     Route: 048
     Dates: start: 2012, end: 20121212
  4. LYRICA [Suspect]
     Dosage: 25 MG, 2X/DAY
     Route: 048
     Dates: start: 20121213, end: 201301
  5. LYRICA [Suspect]
     Dosage: (1ST 25MG, 2ND 50MG) 2X/DAY
     Route: 048
     Dates: start: 20130204, end: 20130404
  6. TRAMCET [Concomitant]
     Indication: HERPES ZOSTER
     Dosage: 60 MG, 3X/DAY
     Route: 048
     Dates: start: 20130124
  7. TRAMCET [Concomitant]
     Dosage: 60 MG, 4X/DAY
     Route: 048
     Dates: start: 20130207
  8. TRYPTANOL [Concomitant]
     Indication: HERPES ZOSTER
     Dosage: 10 MG, 1X/DAY
     Route: 048
     Dates: start: 20130221
  9. PURSENNID [Concomitant]
     Dosage: UNK
     Route: 048
     Dates: start: 20130404, end: 20130404
  10. PREDNISOLONE [Concomitant]
     Dosage: 20 MG/DAY
     Route: 048
     Dates: end: 20120704
  11. PREDNISOLONE [Concomitant]
     Dosage: 7.5 MG/DAY
     Route: 048
     Dates: start: 20120705, end: 20120719
  12. PREDNISOLONE [Concomitant]
     Dosage: 15.0 MG/DAY
     Route: 048
     Dates: start: 20120720, end: 20120802
  13. PREDNISOLONE [Concomitant]
     Dosage: 16 MG/DAY
     Route: 048
     Dates: start: 20120803, end: 20120830
  14. PREDNISOLONE [Concomitant]
     Dosage: 15 MG/DAY
     Route: 048
     Dates: start: 20120831, end: 20120913
  15. PREDNISOLONE [Concomitant]
     Dosage: 14 MG/DAY
     Route: 048
     Dates: start: 20120914, end: 20120926
  16. PREDNISOLONE [Concomitant]
     Dosage: 13 MG/DAY
     Route: 048
     Dates: start: 20120927, end: 20121011
  17. PREDNISOLONE [Concomitant]
     Dosage: 12 MG/DAY
     Route: 048
     Dates: start: 20121012, end: 20121024
  18. PREDNISOLONE [Concomitant]
     Dosage: 11 MG/DAY
     Route: 048
     Dates: start: 20121025, end: 20121106
  19. PREDNISOLONE [Concomitant]
     Dosage: 10 MG/DAY
     Route: 048
     Dates: start: 20121107, end: 20121128
  20. PREDNISOLONE [Concomitant]
     Dosage: 9 MG/DAY
     Route: 048
     Dates: start: 20121129
  21. PREDNISOLONE [Concomitant]
     Dosage: 4 MG, 1X/DAY
     Route: 048
     Dates: start: 20121213
  22. ALLEGRA [Concomitant]
     Dosage: 4 DF/DAY
     Route: 048
     Dates: end: 20120704
  23. ALLEGRA [Concomitant]
     Dosage: 2 DF/DAY
     Dates: start: 20120705, end: 2012
  24. TAKEPRON [Concomitant]
     Dosage: 15 MG, 1X/DAY
     Route: 048
     Dates: start: 20121213
  25. TAKEPRON [Concomitant]
     Dosage: 15 MG, 1X/DAY
     Route: 048
     Dates: start: 20130117
  26. BONALON [Concomitant]
     Dosage: 35 MG, WEEKLY
     Route: 048
     Dates: start: 20121214
  27. PREDNISOLONE ^TAKEDA^ [Concomitant]
     Dosage: 2.5 MG, 2X/DAY
     Route: 048
     Dates: start: 20121213
  28. CALONAL [Concomitant]
     Dosage: 400 MG, 3X/DAY
     Route: 048
     Dates: start: 20130117
  29. FAMVIR [Concomitant]
     Dosage: 500 MG, 2X/DAY
     Route: 048
     Dates: start: 20130117
  30. AZUNOL [Concomitant]
     Indication: HERPES ZOSTER
     Dosage: 50 G, 1X/DAY
     Route: 048
     Dates: start: 20130117

REACTIONS (7)
  - Loss of consciousness [Recovering/Resolving]
  - Dislocation of sternum [Recovering/Resolving]
  - Fall [Recovering/Resolving]
  - Haemorrhage subcutaneous [Recovering/Resolving]
  - Renal impairment [Unknown]
  - Tinnitus [Unknown]
  - Inflammation [Unknown]
